FAERS Safety Report 6880976-3 (Version None)
Quarter: 2010Q2

REPORT INFORMATION
  Report Type: 
  Country: None (occurrence: None)
  Receive Date: 20100630
  Receipt Date: 20090720
  Transmission Date: 20101027
  Serious: Yes (Other)
  Sender: FDA-Public Use
  Company Number: 2009231470

PATIENT
  Age: 30 Year
  Sex: Male
  Weight: 78 kg

DRUGS (2)
  1. ZITHROMAX [Suspect]
     Dosage: ORAL
     Route: 048
     Dates: start: 20090603, end: 20090607
  2. ASPIRIN [Concomitant]

REACTIONS (4)
  - BLISTER [None]
  - PHOTOSENSITIVITY REACTION [None]
  - RASH [None]
  - SUNBURN [None]
